FAERS Safety Report 16370509 (Version 1)
Quarter: 2019Q2

REPORT INFORMATION
  Report Type: Report from Study
  Country: None (occurrence: NL)
  Receive Date: 20190530
  Receipt Date: 20190530
  Transmission Date: 20190711
  Serious: Yes (Other)
  Sender: FDA-Public Use
  Company Number: NL-ABBVIE-17P-114-1991479-00

PATIENT
  Sex: Male
  Weight: 75 kg

DRUGS (8)
  1. DUODOPA [Suspect]
     Active Substance: CARBIDOPA\LEVODOPA
     Route: 050
  2. ANTIBIOTICS [Concomitant]
     Active Substance: UNSPECIFIED INGREDIENT
     Indication: PRODUCT USED FOR UNKNOWN INDICATION
  3. AZILECT [Concomitant]
     Active Substance: RASAGILINE MESYLATE
     Indication: PRODUCT USED FOR UNKNOWN INDICATION
  4. DUODOPA [Suspect]
     Active Substance: CARBIDOPA\LEVODOPA
     Route: 050
  5. SILVER NITRATE. [Concomitant]
     Active Substance: SILVER NITRATE
     Indication: STOMA SITE REACTION
     Route: 065
  6. DUODOPA [Suspect]
     Active Substance: CARBIDOPA\LEVODOPA
     Dosage: MD 6.0 CD 5.7 ED 3.0
     Route: 050
  7. DUODOPA [Suspect]
     Active Substance: CARBIDOPA\LEVODOPA
     Indication: PARKINSON^S DISEASE
     Dosage: MD: 6.0 CD:3.7 ED: 1.5
     Route: 050
     Dates: start: 20110927
  8. DUODOPA [Suspect]
     Active Substance: CARBIDOPA\LEVODOPA
     Dosage: MD 6.0 CD 5.5 ED 3.0
     Route: 050

REACTIONS (23)
  - Feeling abnormal [Recovered/Resolved]
  - Device damage [Unknown]
  - Constipation [Unknown]
  - Tension [Recovered/Resolved]
  - Stoma site pain [Not Recovered/Not Resolved]
  - On and off phenomenon [Unknown]
  - Bradykinesia [Not Recovered/Not Resolved]
  - Stoma site erythema [Not Recovered/Not Resolved]
  - Food intolerance [Not Recovered/Not Resolved]
  - Device physical property issue [Unknown]
  - Stoma site discharge [Recovering/Resolving]
  - Fibroma [Recovered/Resolved]
  - Memory impairment [Not Recovered/Not Resolved]
  - Taste disorder [Not Recovered/Not Resolved]
  - Stoma site irritation [Recovered/Resolved]
  - Therapeutic product effect incomplete [Recovered/Resolved]
  - Stoma site erythema [Recovered/Resolved]
  - Stoma site inflammation [Not Recovered/Not Resolved]
  - Stoma site reaction [Not Recovered/Not Resolved]
  - Device occlusion [Unknown]
  - General physical health deterioration [Not Recovered/Not Resolved]
  - Abdominal discomfort [Not Recovered/Not Resolved]
  - Fatigue [Recovered/Resolved]
